FAERS Safety Report 6110993-2 (Version None)
Quarter: 2009Q1

REPORT INFORMATION
  Report Type: 
  Country: None (occurrence: None)
  Receive Date: 20090311
  Receipt Date: 20090227
  Transmission Date: 20090719
  Serious: Yes (Death, Hospitalization, Other)
  Sender: FDA-Public Use
  Company Number: US-ROCHE-617251

PATIENT
  Age: 55 Year
  Sex: Female

DRUGS (1)
  1. PEGASYS [Suspect]
     Indication: HEPATITIS C
     Route: 065
     Dates: start: 20081215

REACTIONS (6)
  - AMMONIA INCREASED [None]
  - DEATH [None]
  - FLATULENCE [None]
  - INCOHERENT [None]
  - LUNG INFECTION [None]
  - VOMITING [None]
